FAERS Safety Report 21564057 (Version 1)
Quarter: 2022Q4

REPORT INFORMATION
  Report Type: Report from Study
  Country: US (occurrence: US)
  Receive Date: 20221108
  Receipt Date: 20221108
  Transmission Date: 20230112
  Serious: No
  Sender: FDA-Public Use
  Company Number: US-ABBVIE-4152566

PATIENT
  Sex: Male

DRUGS (3)
  1. HUMIRA [Suspect]
     Active Substance: ADALIMUMAB
     Indication: Rheumatoid arthritis
     Route: 058
  2. HUMIRA [Suspect]
     Active Substance: ADALIMUMAB
     Indication: Psoriasis
     Route: 058
  3. Janssen COVID-19 vaccin [Concomitant]
     Indication: COVID-19 immunisation
     Route: 030
     Dates: start: 20210317, end: 20210317

REACTIONS (2)
  - Joint stiffness [Recovered/Resolved]
  - Psoriasis [Recovered/Resolved]
